FAERS Safety Report 7658744-4 (Version None)
Quarter: 2011Q3

REPORT INFORMATION
  Report Type: 
  Country: None (occurrence: None)
  Receive Date: 20110805
  Receipt Date: 20110725
  Transmission Date: 20111222
  Serious: Yes (Hospitalization)
  Sender: FDA-Public Use
  Company Number: SE-NOVOPROD-332619

PATIENT

DRUGS (12)
  1. SIMVASTATIN [Concomitant]
  2. DIAZEPAM [Concomitant]
  3. VICTOZA [Suspect]
     Indication: DIABETES MELLITUS
     Route: 065
  4. NOVOLOG MIX 70/30 [Suspect]
     Indication: PRODUCT USED FOR UNKNOWN INDICATION
  5. ANTABUSE [Concomitant]
  6. THERALEN [Concomitant]
  7. ABILIFY [Suspect]
     Indication: PRODUCT USED FOR UNKNOWN INDICATION
  8. ASPIRIN [Concomitant]
  9. LYRICA [Suspect]
     Indication: PRODUCT USED FOR UNKNOWN INDICATION
  10. ENALAPRIL MALEATE [Suspect]
     Indication: PRODUCT USED FOR UNKNOWN INDICATION
  11. CITALOPRAM HYDROBROMIDE [Suspect]
     Indication: PRODUCT USED FOR UNKNOWN INDICATION
  12. METFORMIN HCL [Suspect]
     Indication: PRODUCT USED FOR UNKNOWN INDICATION

REACTIONS (2)
  - HYPOGLYCAEMIA [None]
  - HYPOTENSION [None]
